FAERS Safety Report 23113874 (Version 1)
Quarter: 2023Q4

REPORT INFORMATION
  Report Type: Spontaneous
  Country: GB (occurrence: GB)
  Receive Date: 20231027
  Receipt Date: 20231027
  Transmission Date: 20240109
  Serious: Yes (Hospitalization, Other)
  Sender: FDA-Public Use
  Company Number: GB-BoehringerIngelheim-2023-BI-268748

PATIENT
  Age: 44 Year
  Sex: Female
  Weight: 77 kg

DRUGS (1)
  1. CLONIDINE [Suspect]
     Active Substance: CLONIDINE
     Indication: Product used for unknown indication
     Dosage: CLONIDINE
     Dates: start: 20110707

REACTIONS (1)
  - Anger [Unknown]

NARRATIVE: CASE EVENT DATE: 20210606
